FAERS Safety Report 5731076-7 (Version None)
Quarter: 2008Q2

REPORT INFORMATION
  Report Type: 
  Country: None (occurrence: None)
  Receive Date: 20080505
  Receipt Date: 20080428
  Transmission Date: 20081010
  Serious: Yes (Other)
  Sender: FDA-Public Use
  Company Number: CLOF-1000146

PATIENT
  Age: 54 Year
  Sex: Male
  Weight: 74.3 kg

DRUGS (11)
  1. CLOFARABINE    (CLOFARABINE) SOLUTION FOR INFUSION [Suspect]
     Indication: ACUTE MYELOID LEUKAEMIA
     Dosage: 40 MG/M2, QDX5, INTRAVENOUS
     Route: 042
     Dates: start: 20080327, end: 20080331
  2. THYMOGLOBULIN [Suspect]
     Indication: ACUTE MYELOID LEUKAEMIA
     Dosage: 1 MG/M2, ONCE, INTRAVENOUS
     Route: 042
     Dates: start: 20080329, end: 20080329
  3. VALTREX [Concomitant]
  4. ANIDULAFUNGIN [Concomitant]
  5. CEFEPIME [Concomitant]
  6. DEXAMETHASONE [Concomitant]
  7. NEXIUM (ESOMEPRAZOLE SODIUM) [Concomitant]
  8. FAMOTIDINE [Concomitant]
  9. SINGULAIR [Concomitant]
  10. PRED FORTE [Concomitant]
  11. CYTARABINE       (CYTABABINE) [Suspect]
     Dosage: 1G/M2, QD X5, IV
     Route: 042
     Dates: start: 20080327, end: 20080331

REACTIONS (5)
  - BURNING SENSATION [None]
  - HYPERBILIRUBINAEMIA [None]
  - MUCOSAL INFLAMMATION [None]
  - RENAL FAILURE ACUTE [None]
  - TOXIC EPIDERMAL NECROLYSIS [None]
